FAERS Safety Report 4375396-X (Version None)
Quarter: 2004Q2

REPORT INFORMATION
  Report Type: 
  Country: None (occurrence: None)
  Receive Date: 20040528
  Receipt Date: 20040316
  Transmission Date: 20050107
  Serious: Yes (Other)
  Sender: FDA-Public Use
  Company Number: 200410085BBE

PATIENT
  Sex: Female

DRUGS (1)
  1. RHO-D IMMUNE GLOBULIN (HUMAN) - MANUFACTURER UNKNOWN [Suspect]
     Indication: PREGNANCY
     Dosage: UNK

REACTIONS (1)
  - ADVERSE EVENT [None]
